FAERS Safety Report 9323713 (Version 1)
Quarter: 2013Q2

REPORT INFORMATION
  Report Type: Spontaneous
  Country: CA (occurrence: CA)
  Receive Date: 20130603
  Receipt Date: 20130603
  Transmission Date: 20140414
  Serious: Yes (Other)
  Sender: FDA-Public Use
  Company Number: CA-JNJFOC-20130515162

PATIENT
  Age: 96 Year
  Sex: Female

DRUGS (16)
  1. TYLENOL [Suspect]
     Route: 048
  2. TYLENOL [Suspect]
     Indication: PRODUCT USED FOR UNKNOWN INDICATION
     Route: 048
  3. BUTRANS [Suspect]
     Indication: PRODUCT USED FOR UNKNOWN INDICATION
     Dosage: 5.0 MICROGRAM
     Route: 062
  4. BUTRANS [Suspect]
     Indication: PRODUCT USED FOR UNKNOWN INDICATION
     Dosage: 10.0 MICROGRAM
     Route: 062
  5. OXYBUTYNIN [Concomitant]
     Route: 065
  6. APO-LEVOCARB [Concomitant]
     Route: 065
  7. BETAHISTINE [Concomitant]
     Route: 065
  8. DOCUSATE SODIUM [Concomitant]
     Route: 065
  9. ELTROXIN [Concomitant]
     Route: 065
  10. FUROSEMIDE [Concomitant]
     Route: 065
  11. MICRO -K [Concomitant]
     Route: 065
  12. OLANZAPINE [Concomitant]
     Route: 065
  13. RANITIDINE [Concomitant]
     Route: 065
  14. SENOKOT S [Concomitant]
     Route: 065
  15. SINEMET [Concomitant]
     Route: 065
  16. TIAZAC [Concomitant]
     Route: 007

REACTIONS (6)
  - Confusional state [Unknown]
  - Speech disorder [Unknown]
  - Swollen tongue [Unknown]
  - Urinary tract infection [Unknown]
  - Somnolence [Unknown]
  - Pain [Unknown]
